FAERS Safety Report 18480734 (Version 1)
Quarter: 2020Q4

REPORT INFORMATION
  Report Type: Spontaneous
  Country: GR (occurrence: GR)
  Receive Date: 20201109
  Receipt Date: 20201109
  Transmission Date: 20210114
  Serious: Yes (Other)
  Sender: FDA-Public Use
  Company Number: GR-BRISTOL-MYERS SQUIBB COMPANY-BMS-2020-092927

PATIENT
  Age: 84 Year
  Sex: Female

DRUGS (1)
  1. ELIQUIS [Suspect]
     Active Substance: APIXABAN
     Indication: BRADYCARDIA
     Dosage: 2.5 MILLIGRAM, BID
     Route: 065

REACTIONS (9)
  - Blood pressure abnormal [Unknown]
  - Pain in jaw [Unknown]
  - Tracheal pain [Unknown]
  - Intentional product use issue [Unknown]
  - Dyspnoea [Unknown]
  - Somnolence [Unknown]
  - Gastrointestinal disorder [Unknown]
  - Cardiac disorder [Unknown]
  - Oesophagitis [Unknown]

NARRATIVE: CASE EVENT DATE: 20201101
